FAERS Safety Report 5751849-4 (Version None)
Quarter: 2008Q2

REPORT INFORMATION
  Report Type: 
  Country: None (occurrence: None)
  Receive Date: 20080529
  Receipt Date: 20080417
  Transmission Date: 20081010
  Serious: No
  Sender: FDA-Public Use
  Company Number: US-BAYER-200822175NA

PATIENT
  Age: 79 Year
  Sex: Male
  Weight: 91 kg

DRUGS (7)
  1. MAGNEVIST [Suspect]
     Indication: ANGIOGRAM
     Dosage: TOTAL DAILY DOSE: 45 ML  UNIT DOSE: 100 ML
     Route: 042
     Dates: start: 20080416, end: 20080416
  2. AMLODIPINE [Concomitant]
  3. LISINOPRIL [Concomitant]
  4. ACTOS [Concomitant]
  5. TRIAMTERENE [Concomitant]
  6. PLAVIX [Concomitant]
  7. SIMVASTATIN [Concomitant]

REACTIONS (2)
  - EYELID OEDEMA [None]
  - LACRIMATION INCREASED [None]
